FAERS Safety Report 17680552 (Version 1)
Quarter: 2020Q2

REPORT INFORMATION
  Report Type: Spontaneous
  Country: US (occurrence: US)
  Receive Date: 20200417
  Receipt Date: 20200417
  Transmission Date: 20200714
  Serious: Yes (Hospitalization, Other)
  Sender: FDA-Public Use
  Company Number: US-PURDUE PHARMA-USA-2020-0151538

PATIENT
  Sex: Male

DRUGS (2)
  1. OXYCONTIN [Suspect]
     Active Substance: OXYCODONE HYDROCHLORIDE
     Indication: BACK PAIN
     Dosage: UNK
     Route: 048
  2. MS CONTIN [Suspect]
     Active Substance: MORPHINE SULFATE
     Indication: BACK PAIN
     Dosage: UNK
     Route: 048

REACTIONS (13)
  - Drug dependence [Unknown]
  - Drug tolerance [Unknown]
  - Depression [Unknown]
  - Cholecystectomy [Unknown]
  - Gallbladder disorder [Unknown]
  - Post-traumatic stress disorder [Unknown]
  - Arthritis [Unknown]
  - Panic attack [Unknown]
  - Rectal fissure [Unknown]
  - Rectal haemorrhage [Unknown]
  - Constipation [Unknown]
  - Generalised anxiety disorder [Unknown]
  - Drug withdrawal syndrome [Unknown]
